FAERS Safety Report 4818092-4 (Version None)
Quarter: 2005Q4

REPORT INFORMATION
  Report Type: 
  Country: None (occurrence: None)
  Receive Date: 20051102
  Receipt Date: 20050324
  Transmission Date: 20060501
  Serious: Yes (Other)
  Sender: FDA-Public Use
  Company Number: SER/8/3910

PATIENT
  Sex: Female

DRUGS (1)
  1. PAROXETINE HCL [Suspect]

REACTIONS (7)
  - AGGRESSION [None]
  - AGITATION [None]
  - ANXIETY [None]
  - DEPRESSED MOOD [None]
  - HEADACHE [None]
  - ILL-DEFINED DISORDER [None]
  - PSYCHOMOTOR HYPERACTIVITY [None]
